FAERS Safety Report 9642322 (Version 2)
Quarter: 2015Q4

REPORT INFORMATION
  Report Type: Report from Study
  Country: US (occurrence: US)
  Receive Date: 20131024
  Receipt Date: 20151103
  Transmission Date: 20160305
  Serious: Yes (Disabling)
  Sender: FDA-Public Use
  Company Number: US-ROCHE-1292874

PATIENT
  Age: 60 Year
  Sex: Male
  Weight: 110.78 kg

DRUGS (2)
  1. LUCENTIS [Suspect]
     Active Substance: RANIBIZUMAB
     Indication: DIABETIC RETINAL OEDEMA
     Route: 050
     Dates: start: 20131009
  2. LUCENTIS [Suspect]
     Active Substance: RANIBIZUMAB
     Dosage: BOTH EYES
     Route: 050

REACTIONS (11)
  - Photophobia [Unknown]
  - Abasia [Not Recovered/Not Resolved]
  - Blindness [Unknown]
  - Eye swelling [Unknown]
  - Eye disorder [Unknown]
  - Lacrimation increased [Not Recovered/Not Resolved]
  - Pain in extremity [Not Recovered/Not Resolved]
  - Pain [Recovered/Resolved]
  - Somnolence [Unknown]
  - Dizziness [Unknown]
  - Rhinorrhoea [Unknown]

NARRATIVE: CASE EVENT DATE: 20131009
